FAERS Safety Report 7594896-2 (Version None)
Quarter: 2011Q2

REPORT INFORMATION
  Report Type: 
  Country: None (occurrence: None)
  Receive Date: 20110615
  Receipt Date: 20110308
  Transmission Date: 20111010
  Serious: Yes (Hospitalization)
  Sender: FDA-Public Use
  Company Number: WAES 1103USA01321

PATIENT
  Age: 56 Year
  Sex: Female

DRUGS (3)
  1. COZAAR [Suspect]
     Dosage: PO
     Route: 048
  2. COZAAR [Suspect]
     Indication: HYPERTENSION
     Dosage: 50 MG/PO
     Route: 048
     Dates: start: 20070301
  3. METOPROLOL TARTRATE [Concomitant]

REACTIONS (4)
  - INCORRECT DOSE ADMINISTERED [None]
  - VERTIGO [None]
  - CEREBROVASCULAR ACCIDENT [None]
  - TINNITUS [None]
